FAERS Safety Report 8126263-7 (Version None)
Quarter: 2012Q1

REPORT INFORMATION
  Report Type: 
  Country: None (occurrence: None)
  Receive Date: 20120209
  Receipt Date: 20120208
  Transmission Date: 20120608
  Serious: Yes (Other)
  Sender: FDA-Public Use
  Company Number: PHFR2011IE03011

PATIENT
  Sex: Female

DRUGS (6)
  1. CLOZARIL [Suspect]
     Dosage: REDUCED BY 50 MG
  2. QUETIAPINE [Concomitant]
     Dosage: 100 MG/DAY
     Route: 048
  3. QUETIAPINE [Concomitant]
     Dosage: 200 MG/DAY
     Route: 048
  4. ESCITALOPRAM [Concomitant]
     Dosage: 20 MG/DAY
     Route: 048
  5. CLOZARIL [Suspect]
     Indication: SCHIZOPHRENIA
     Route: 048
     Dates: start: 20101026
  6. ARIPIPRAZOLE [Concomitant]
     Dosage: 20 MG/DAY
     Route: 048

REACTIONS (3)
  - ANTIPSYCHOTIC DRUG LEVEL INCREASED [None]
  - MATERNAL EXPOSURE DURING PREGNANCY [None]
  - URINARY TRACT INFECTION [None]
